FAERS Safety Report 5987284-3 (Version None)
Quarter: 2008Q4

REPORT INFORMATION
  Report Type: 
  Country: None (occurrence: None)
  Receive Date: 20081209
  Receipt Date: 20081201
  Transmission Date: 20090506
  Serious: Yes (Hospitalization)
  Sender: FDA-Public Use
  Company Number: US-ELI_LILLY_AND_COMPANY-US200810007390

PATIENT
  Sex: Female
  Weight: 79.365 kg

DRUGS (13)
  1. BYETTA [Suspect]
     Indication: TYPE 2 DIABETES MELLITUS
     Dosage: 5 UG, 2/D
     Route: 058
     Dates: start: 20050101, end: 20081001
  2. BYETTA [Suspect]
     Dosage: 10 UG, 2/D
     Route: 058
     Dates: start: 20081001
  3. PLAVIX [Concomitant]
     Indication: CARDIAC DISORDER
     Dosage: 75 MG, DAILY (1/D)
  4. GLYBURIDE [Concomitant]
     Indication: TYPE 2 DIABETES MELLITUS
     Dosage: 10 MG, DAILY (1/D)
     Route: 048
  5. ALBUTEROL [Concomitant]
     Indication: ASTHMA
     Dosage: UNK, EACH MORNING
     Route: 055
  6. ALLEGRA-D 12 HOUR [Concomitant]
     Dosage: UNK, 2/D
  7. TRICOR [Concomitant]
     Dosage: 48 MG, DAILY (1/D)
  8. CYMBALTA [Concomitant]
     Dosage: 60 MG, DAILY (1/D)
  9. LYRICA [Concomitant]
     Dosage: 75 MG, 2/D
  10. CENESTIN [Concomitant]
     Dosage: 0.45 MG, DAILY (1/D)
  11. ATENOLOL [Concomitant]
     Dosage: 50 MG, 2/D
  12. MICARDIS [Concomitant]
     Dosage: 40 MG, DAILY (1/D)
  13. VYTORIN [Concomitant]
     Dosage: UNK, DAILY (1/D)

REACTIONS (3)
  - ANGINA PECTORIS [None]
  - ASTHMA [None]
  - CORONARY ARTERY DISEASE [None]
